FAERS Safety Report 6257316-6 (Version None)
Quarter: 2009Q3

REPORT INFORMATION
  Report Type: 
  Country: None (occurrence: None)
  Receive Date: 20090706
  Receipt Date: 20090629
  Transmission Date: 20100115
  Serious: Yes (Congenital Anomaly, Other)
  Sender: FDA-Public Use
  Company Number: US-ROCHE-640900

PATIENT
  Sex: Female
  Weight: 2.2 kg

DRUGS (8)
  1. CELLCEPT [Suspect]
     Route: 064
  2. TACROLIMUS [Suspect]
     Dosage: DOSE: 3 MG IN MORNING, 2 MG IN EVENING
     Route: 064
  3. PREDNISONE [Suspect]
     Route: 064
  4. NORVASC [Concomitant]
     Indication: HYPERTENSION
  5. METOPROLOL [Concomitant]
     Indication: HYPERTENSION
  6. LASIX [Concomitant]
     Indication: HYPERTENSION
  7. EPOGEN [Concomitant]
  8. VITAMIN [Concomitant]

REACTIONS (33)
  - ATRIAL SEPTAL DEFECT [None]
  - BLADDER DILATATION [None]
  - CLEFT PALATE [None]
  - COARCTATION OF THE AORTA [None]
  - CONGENITAL ANOMALY [None]
  - CONGENITAL DIAPHRAGMATIC HERNIA [None]
  - CONGENITAL NAIL DISORDER [None]
  - CONGENITAL NOSE MALFORMATION [None]
  - CYANOSIS [None]
  - DYSMORPHISM [None]
  - EAR MALFORMATION [None]
  - GASTROINTESTINAL MALFORMATION [None]
  - HYPERTELORISM OF ORBIT [None]
  - INTRAVENTRICULAR HAEMORRHAGE NEONATAL [None]
  - IRIS HYPOPIGMENTATION [None]
  - MICROTIA [None]
  - NIPPLE DISORDER [None]
  - OESOPHAGEAL ATRESIA [None]
  - POLYHYDRAMNIOS [None]
  - PTERYGIUM COLLI [None]
  - PULMONARY HYPERTENSION [None]
  - PULMONARY HYPOPLASIA [None]
  - PYELOCALIECTASIS [None]
  - RENAL DISORDER [None]
  - RETROGNATHIA [None]
  - SPINA BIFIDA [None]
  - SUBARACHNOID HAEMORRHAGE [None]
  - TRACHEO-OESOPHAGEAL FISTULA [None]
  - UMBILICAL ARTERY HYPOPLASIA [None]
  - URETERIC DILATATION [None]
  - VASCULAR ANOMALY [None]
  - VELO-CARDIO-FACIAL SYNDROME [None]
  - VENTRICULAR SEPTAL DEFECT [None]
